FAERS Safety Report 10028607 (Version 1)
Quarter: 2014Q1

REPORT INFORMATION
  Report Type: Spontaneous
  Country: US (occurrence: US)
  Receive Date: 20140321
  Receipt Date: 20140321
  Transmission Date: 20141002
  Serious: Yes (Death, Hospitalization)
  Sender: FDA-Public Use
  Company Number: US-GLAXOSMITHKLINE-A1065610A

PATIENT
  Age: 65 Year
  Sex: Male

DRUGS (2)
  1. ARIXTRA [Suspect]
     Indication: THROMBOSIS
     Route: 065
     Dates: start: 201308
  2. NO CONCURRENT MEDICATION [Concomitant]

REACTIONS (3)
  - Hepatic cancer [Fatal]
  - Myocardial infarction [Unknown]
  - Cerebrovascular accident [Unknown]
